FAERS Safety Report 6855938-2 (Version None)
Quarter: 2010Q3

REPORT INFORMATION
  Report Type: 
  Country: None (occurrence: None)
  Receive Date: 20100716
  Receipt Date: 20100716
  Transmission Date: 20110219
  Serious: Yes (Disabling, Other)
  Sender: FDA-Public Use
  Company Number: None

PATIENT
  Age: 35 Year
  Sex: Female
  Weight: 60.782 kg

DRUGS (1)
  1. CEPHALEXIN [Suspect]
     Indication: SKIN LACERATION
     Dosage: TAK 1 TWICE A DAY 2 - A DAY

REACTIONS (2)
  - HYPERSENSITIVITY [None]
  - ORAL CANDIDIASIS [None]
